FAERS Safety Report 13725406 (Version 1)
Quarter: 2017Q3

REPORT INFORMATION
  Report Type: Report from Study
  Country: US (occurrence: US)
  Receive Date: 20170707
  Receipt Date: 20170707
  Transmission Date: 20171127
  Serious: Yes (Hospitalization, Other)
  Sender: FDA-Public Use
  Company Number: US-ROCHE-1958565

PATIENT
  Age: 52 Year
  Sex: Female

DRUGS (3)
  1. LASIX [Concomitant]
     Active Substance: FUROSEMIDE
  2. ESBRIET [Suspect]
     Active Substance: PIRFENIDONE
     Indication: IDIOPATHIC PULMONARY FIBROSIS
     Dosage: 3 CAPSULES 3 TIMES A DAY ;ONGOING: NO
     Route: 048
     Dates: start: 201704, end: 20170416
  3. ESBRIET [Suspect]
     Active Substance: PIRFENIDONE
     Dosage: 3 PILLS 3 TIMES A DAY ;ONGOING: YES
     Route: 048
     Dates: start: 201705

REACTIONS (5)
  - Pleural effusion [Unknown]
  - Pyrexia [Unknown]
  - Dyspnoea [Unknown]
  - Pulmonary fibrosis [Unknown]
  - Pneumonia [Unknown]

NARRATIVE: CASE EVENT DATE: 20170416
